FAERS Safety Report 10512635 (Version 3)
Quarter: 2014Q4

REPORT INFORMATION
  Report Type: Spontaneous
  Country: US (occurrence: US)
  Receive Date: 20141011
  Receipt Date: 20141031
  Transmission Date: 20150528
  Serious: No
  Sender: FDA-Public Use
  Company Number: US-009507513-1410USA004206

PATIENT
  Age: 21 Year
  Sex: Female
  Weight: 74.38 kg

DRUGS (1)
  1. IMPLANON [Suspect]
     Active Substance: ETONOGESTREL
     Indication: CONTRACEPTION
     Dosage: 1 ROD FOR 3 YEARS
     Route: 059
     Dates: start: 20130104

REACTIONS (3)
  - Medical device complication [Not Recovered/Not Resolved]
  - Device difficult to use [Not Recovered/Not Resolved]
  - Surgery [Not Recovered/Not Resolved]

NARRATIVE: CASE EVENT DATE: 201405
